FAERS Safety Report 8182126-2 (Version None)
Quarter: 2012Q1

REPORT INFORMATION
  Report Type: 
  Country: None (occurrence: None)
  Receive Date: 20120302
  Receipt Date: 20110613
  Transmission Date: 20120608
  Serious: Yes (Other)
  Sender: FDA-Public Use
  Company Number: PHHY2011US53194

PATIENT
  Sex: Female

DRUGS (3)
  1. GILENYA [Suspect]
     Indication: MULTIPLE SCLEROSIS
     Dosage: 0.5 MG, DAILY
     Route: 048
     Dates: start: 20110118
  2. PROVIGIL [Concomitant]
  3. CYMBALTA [Concomitant]

REACTIONS (4)
  - PAIN [None]
  - VISION BLURRED [None]
  - FALL [None]
  - HEAD INJURY [None]
